FAERS Safety Report 24630804 (Version 4)
Quarter: 2025Q3

REPORT INFORMATION
  Report Type: Spontaneous
  Country: CA (occurrence: CA)
  Receive Date: 20241118
  Receipt Date: 20250808
  Transmission Date: 20251021
  Serious: Yes (Hospitalization, Other)
  Sender: PFIZER
  Company Number: CA-PFIZER INC-202400001468

PATIENT
  Age: 31 Year
  Sex: Female

DRUGS (17)
  1. RUXIENCE [Suspect]
     Active Substance: RITUXIMAB-PVVR
     Indication: Granulomatosis with polyangiitis
     Route: 042
     Dates: start: 20230111, end: 20230126
  2. RUXIENCE [Suspect]
     Active Substance: RITUXIMAB-PVVR
  3. RUXIENCE [Suspect]
     Active Substance: RITUXIMAB-PVVR
     Route: 042
     Dates: start: 20240124
  4. RUXIENCE [Suspect]
     Active Substance: RITUXIMAB-PVVR
     Route: 042
     Dates: start: 20240213
  5. RUXIENCE [Suspect]
     Active Substance: RITUXIMAB-PVVR
     Route: 042
     Dates: start: 20240731, end: 20240813
  6. RUXIENCE [Suspect]
     Active Substance: RITUXIMAB-PVVR
     Route: 042
     Dates: start: 20240813
  7. RUXIENCE [Suspect]
     Active Substance: RITUXIMAB-PVVR
     Route: 042
     Dates: start: 20241106, end: 20241127
  8. RUXIENCE [Suspect]
     Active Substance: RITUXIMAB-PVVR
     Route: 042
     Dates: start: 20250428, end: 20250512
  9. BUPROPION HYDROCHLORIDE [Concomitant]
     Active Substance: BUPROPION HYDROCHLORIDE
  10. GLICLAZIDE [Concomitant]
     Active Substance: GLICLAZIDE
  11. METFORMIN [Concomitant]
     Active Substance: METFORMIN HYDROCHLORIDE
  12. METOPROLOL [Concomitant]
     Active Substance: METOPROLOL
  13. OMEPRAZOLE [Concomitant]
     Active Substance: OMEPRAZOLE
  14. ORILISSA [Concomitant]
     Active Substance: ELAGOLIX SODIUM
  15. PREGABALIN [Concomitant]
     Active Substance: PREGABALIN
  16. RIVAROXABAN [Concomitant]
     Active Substance: RIVAROXABAN
  17. PREDNISONE [Concomitant]
     Active Substance: PREDNISONE
     Dates: start: 20250125

REACTIONS (9)
  - Condition aggravated [Not Recovered/Not Resolved]
  - Pulmonary haemorrhage [Unknown]
  - Drug ineffective [Unknown]
  - Malaise [Unknown]
  - Ear infection [Unknown]
  - Pharyngitis [Unknown]
  - Pain in extremity [Unknown]
  - Migraine [Unknown]
  - Gait disturbance [Unknown]

NARRATIVE: CASE EVENT DATE: 20230101
